FAERS Safety Report 9914150 (Version 1)
Quarter: 2014Q1

REPORT INFORMATION
  Report Type: Spontaneous
  Country: US (occurrence: None)
  Receive Date: 20140214
  Receipt Date: 20140214
  Transmission Date: 20141002
  Serious: Yes (Death)
  Sender: FDA-Public Use
  Company Number: 1402-0284

PATIENT
  Sex: Male

DRUGS (1)
  1. EYLEA(AFLIBERCEPT)(INJECTION)(AFLIBERCEPT) [Suspect]
     Indication: AGE-RELATED MACULAR DEGENERATION
     Dosage: 2 MG, EVERY 4 TO 8 WEEKS, INTRAVITREAL
     Dates: start: 201303, end: 20131218

REACTIONS (1)
  - Death [None]
